FAERS Safety Report 4728217-7 (Version None)
Quarter: 2005Q3

REPORT INFORMATION
  Report Type: 
  Country: None (occurrence: None)
  Receive Date: 20050727
  Receipt Date: 20050714
  Transmission Date: 20060218
  Serious: Yes (Hospitalization)
  Sender: FDA-Public Use
  Company Number: WAES 01113065

PATIENT
  Age: 52 Year
  Sex: Male

DRUGS (7)
  1. CRIXIVAN [Suspect]
     Indication: HIV INFECTION
     Dosage: 800 MG/DAILY PO
     Route: 048
     Dates: start: 19991102, end: 20040707
  2. EFAVIRENZ [Suspect]
     Indication: HIV INFECTION
     Dosage: 600 MG/DAILY PO
     Route: 048
     Dates: start: 19991102
  3. ZIAGEN [Suspect]
     Indication: HIV INFECTION
     Dosage: 300 MG/BID PO
     Route: 048
     Dates: start: 19991102
  4. NORVIR [Suspect]
     Indication: HIV INFECTION
     Dosage: SEE IMAGE
     Route: 048
     Dates: start: 19991102, end: 20040331
  5. NORVIR [Suspect]
     Indication: HIV INFECTION
     Dosage: SEE IMAGE
     Route: 048
     Dates: start: 20040401, end: 20040707
  6. NORVIR [Suspect]
     Indication: HIV INFECTION
     Dosage: SEE IMAGE
     Route: 048
     Dates: start: 20040708
  7. PENTAMIDINE ISETHIONATE [Concomitant]

REACTIONS (2)
  - HYPERLIPIDAEMIA [None]
  - PULMONARY TUBERCULOSIS [None]
